FAERS Safety Report 6791926-2 (Version None)
Quarter: 2010Q2

REPORT INFORMATION
  Report Type: 
  Country: None (occurrence: None)
  Receive Date: 20100624
  Receipt Date: 20080714
  Transmission Date: 20101027
  Serious: No
  Sender: FDA-Public Use
  Company Number: US-PFIZER INC-2008059275

PATIENT
  Age: 74 Year
  Sex: Male
  Weight: 70.31 kg

DRUGS (4)
  1. XALATAN [Suspect]
     Indication: GLAUCOMA
     Route: 047
     Dates: start: 20080326
  2. ADALAT [Concomitant]
     Indication: HYPERTENSION
  3. TOPROL-XL [Concomitant]
     Indication: HYPERTENSION
  4. DIAZEPAM [Concomitant]
     Indication: ANXIETY

REACTIONS (2)
  - OCULAR HYPERAEMIA [None]
  - PHOTOSENSITIVITY REACTION [None]
